FAERS Safety Report 5846370-9 (Version None)
Quarter: 2008Q3

REPORT INFORMATION
  Report Type: 
  Country: None (occurrence: None)
  Receive Date: 20080815
  Receipt Date: 20080815
  Transmission Date: 20090109
  Serious: Yes (Death, Life-Threatening, Hospitalization)
  Sender: FDA-Public Use
  Company Number: None

PATIENT
  Age: 78 Year
  Sex: Male
  Weight: 104 kg

DRUGS (13)
  1. HEPARIN [Suspect]
     Indication: CORONARY ARTERY BYPASS
     Dosage: 35,000 UNITS ONCE IV
     Route: 042
     Dates: start: 20080214, end: 20080214
  2. HEPARIN [Suspect]
     Indication: HEART VALVE REPLACEMENT
     Dosage: 35,000 UNITS ONCE IV
     Route: 042
     Dates: start: 20080214, end: 20080214
  3. ALPRAZOLAM [Concomitant]
  4. CAPTOPRIL [Concomitant]
  5. NIFEDIPINE [Concomitant]
  6. POTASSIUM CHLORIDE [Concomitant]
  7. FUROSEMIDE [Concomitant]
  8. INSULIN [Concomitant]
  9. CLOPIDOGREL [Concomitant]
  10. DIGOXIN [Concomitant]
  11. FAMOTIDINE [Concomitant]
  12. LOVASTATIN [Concomitant]
  13. ASPIRIN [Concomitant]

REACTIONS (8)
  - BLOOD CULTURE POSITIVE [None]
  - COAGULOPATHY [None]
  - DISSEMINATED INTRAVASCULAR COAGULATION [None]
  - ENTEROBACTER INFECTION [None]
  - HYPOTENSION [None]
  - MEAN ARTERIAL PRESSURE DECREASED [None]
  - PYREXIA [None]
  - THROMBOCYTOPENIA [None]
